FAERS Safety Report 25284491 (Version 2)
Quarter: 2025Q3

REPORT INFORMATION
  Report Type: Report from Study
  Country: US (occurrence: US)
  Receive Date: 20250508
  Receipt Date: 20250729
  Transmission Date: 20251021
  Serious: Yes (Hospitalization, Other)
  Sender: UCB
  Company Number: US-UCBSA-2024052027

PATIENT
  Age: 76 Year
  Sex: Male

DRUGS (1)
  1. BRIVARACETAM [Suspect]
     Active Substance: BRIVARACETAM
     Indication: Seizure
     Dosage: 100 MILLIGRAM, 2X/DAY (BID)
     Dates: start: 2022

REACTIONS (8)
  - Cardiac pacemaker insertion [Recovered/Resolved]
  - Cardiac disorder [Unknown]
  - Hospitalisation [Not Recovered/Not Resolved]
  - Malaise [Unknown]
  - Depression [Unknown]
  - Feeling abnormal [Unknown]
  - Therapy cessation [Unknown]
  - Wrong technique in product usage process [Unknown]

NARRATIVE: CASE EVENT DATE: 20241008
